FAERS Safety Report 21819164 (Version 1)
Quarter: 2023Q1

REPORT INFORMATION
  Report Type: Spontaneous
  Country: FR (occurrence: FR)
  Receive Date: 20230104
  Receipt Date: 20230104
  Transmission Date: 20230417
  Serious: Yes (Hospitalization, Other)
  Sender: FDA-Public Use
  Company Number: None

PATIENT
  Age: 83 Year
  Sex: Female
  Weight: 61 kg

DRUGS (6)
  1. LANSOPRAZOLE [Interacting]
     Active Substance: LANSOPRAZOLE
     Indication: Product used for unknown indication
     Dosage: 30 MILLIGRAM, QD
     Route: 048
     Dates: start: 20211126, end: 20211215
  2. METHOTREXATE [Interacting]
     Active Substance: METHOTREXATE
     Indication: Central nervous system lymphoma
     Dosage: 1560 MILLIGRAM
     Route: 042
     Dates: start: 20211213, end: 20211213
  3. TRUXIMA [Suspect]
     Active Substance: RITUXIMAB-ABBS
     Indication: Central nervous system lymphoma
     Dosage: 590 MILLIGRAM
     Route: 042
     Dates: start: 20211213, end: 20211213
  4. SULFAMETHOXAZOLE\TRIMETHOPRIM [Interacting]
     Active Substance: SULFAMETHOXAZOLE\TRIMETHOPRIM
     Indication: Antibiotic prophylaxis
     Dosage: 1 DOSAGE FORM, QOD
     Route: 048
     Dates: start: 20211106, end: 20211213
  5. VALACYCLOVIR HYDROCHLORIDE [Interacting]
     Active Substance: VALACYCLOVIR HYDROCHLORIDE
     Indication: Antiviral prophylaxis
     Dosage: 2 DOSAGE FORM, QD
     Route: 048
     Dates: start: 20211204, end: 20211213
  6. ETOPOSIDE [Suspect]
     Active Substance: ETOPOSIDE
     Indication: Central nervous system lymphoma
     Dosage: 100 MILLIGRAM
     Route: 042
     Dates: start: 20211214, end: 20211214

REACTIONS (1)
  - Acute kidney injury [Recovered/Resolved]
